FAERS Safety Report 19267209 (Version 1)
Quarter: 2021Q2

REPORT INFORMATION
  Report Type: Spontaneous
  Country: CN (occurrence: CN)
  Receive Date: 20210518
  Receipt Date: 20210518
  Transmission Date: 20210717
  Serious: Yes (Other)
  Sender: FDA-Public Use
  Company Number: CN-EMD SERONO-9237609

PATIENT
  Age: 37 Year
  Sex: Male

DRUGS (1)
  1. GLUCOPHAGE [Suspect]
     Active Substance: METFORMIN HYDROCHLORIDE
     Indication: DIABETES MELLITUS
     Route: 048
     Dates: start: 2019

REACTIONS (5)
  - Lactic acidosis [Unknown]
  - Depression [Unknown]
  - Arthralgia [Unknown]
  - Nervous system disorder [Unknown]
  - Blood uric acid increased [Unknown]
